FAERS Safety Report 6334390-X (Version None)
Quarter: 2009Q3

REPORT INFORMATION
  Report Type: 
  Country: None (occurrence: None)
  Receive Date: 20090831
  Receipt Date: 20090821
  Transmission Date: 20100115
  Serious: Yes (Hospitalization)
  Sender: FDA-Public Use
  Company Number: US-BIOGENIDEC-2009BI025186

PATIENT
  Age: 58 Year
  Sex: Female

DRUGS (5)
  1. AVONEX [Suspect]
     Indication: MULTIPLE SCLEROSIS
     Route: 030
     Dates: start: 20040801, end: 20090701
  2. AVONEX [Suspect]
     Route: 030
     Dates: start: 19960101
  3. XANAX [Concomitant]
     Indication: IRRITABLE BOWEL SYNDROME
  4. LEVSIN [Concomitant]
     Indication: IRRITABLE BOWEL SYNDROME
  5. NEXIUM [Concomitant]
     Indication: GASTROOESOPHAGEAL REFLUX DISEASE

REACTIONS (1)
  - MYOCARDIAL INFARCTION [None]
